FAERS Safety Report 5387668-0 (Version None)
Quarter: 2007Q3

REPORT INFORMATION
  Report Type: 
  Country: None (occurrence: None)
  Receive Date: 20070712
  Receipt Date: 20070630
  Transmission Date: 20080115
  Serious: Yes (Hospitalization)
  Sender: FDA-Public Use
  Company Number: 2007BI014441

PATIENT
  Age: 60 Year
  Sex: Male

DRUGS (5)
  1. AVONEX [Suspect]
     Indication: MULTIPLE SCLEROSIS
     Dosage: 30 UG;QW;IM
     Route: 030
     Dates: start: 20050101
  2. ACETYLSALICYLIC ACID SRT [Concomitant]
  3. CAPTOPRIL [Concomitant]
  4. CARBAMAZEPINE [Concomitant]
  5. UNKNOWN MEDICATION [Concomitant]

REACTIONS (3)
  - DIABETES MELLITUS [None]
  - LEG AMPUTATION [None]
  - MULTIPLE SCLEROSIS RELAPSE [None]
